FAERS Safety Report 5851795-1 (Version None)
Quarter: 2008Q3

REPORT INFORMATION
  Report Type: 
  Country: None (occurrence: None)
  Receive Date: 20080820
  Receipt Date: 20080812
  Transmission Date: 20090109
  Serious: Yes (Other)
  Sender: FDA-Public Use
  Company Number: US-JNJCH-2008021311

PATIENT
  Age: 61 Year
  Sex: Female

DRUGS (1)
  1. NEOSPORIN [Suspect]
     Indication: EYE INFECTION
     Dosage: TEXT:UNSPECIFIED
     Route: 047

REACTIONS (7)
  - EYE DISCHARGE [None]
  - EYE SWELLING [None]
  - HEADACHE [None]
  - OCULAR HYPERAEMIA [None]
  - PAIN [None]
  - PRURITUS [None]
  - RASH [None]
